FAERS Safety Report 19305294 (Version 1)
Quarter: 2021Q2

REPORT INFORMATION
  Report Type: Report from Study
  Country: None (occurrence: BR)
  Receive Date: 20210526
  Receipt Date: 20210526
  Transmission Date: 20210717
  Serious: Yes (Disabling, Other)
  Sender: FDA-Public Use
  Company Number: BR-ABBVIE-21K-020-3921251-00

PATIENT
  Sex: Male

DRUGS (2)
  1. HUMIRA [Suspect]
     Active Substance: ADALIMUMAB
     Indication: RHEUMATOID ARTHRITIS
     Dosage: UNSPECIFIED DOSE
     Route: 058
     Dates: start: 20120720
  2. HUMIRA [Suspect]
     Active Substance: ADALIMUMAB
     Dosage: UNSPECIFIED DOSE
     Route: 058
     Dates: end: 20210308

REACTIONS (5)
  - Cardiac operation [Unknown]
  - Unevaluable event [Unknown]
  - Insomnia [Unknown]
  - Malaise [Unknown]
  - Atrophy [Unknown]
